FAERS Safety Report 9272537 (Version 2)
Quarter: 2013Q2

REPORT INFORMATION
  Report Type: Spontaneous
  Country: IT (occurrence: IT)
  Receive Date: 20130506
  Receipt Date: 20130506
  Transmission Date: 20140414
  Serious: Yes (Other)
  Sender: FDA-Public Use
  Company Number: IT-JNJFOC-20090802534

PATIENT
  Age: 30 Year
  Sex: Male
  Weight: 74 kg

DRUGS (5)
  1. UNSPECIFIED IBUPROFEN 400 MG TABLET [Suspect]
     Indication: PRODUCT USED FOR UNKNOWN INDICATION
     Route: 048
  2. LAMICTAL [Suspect]
     Indication: EPILEPSY
     Route: 065
  3. LAMICTAL [Suspect]
     Indication: EPILEPSY
     Route: 065
  4. SEROXAT [Suspect]
     Indication: DEPRESSION
     Route: 048
  5. SODIUM VALPROATE [Suspect]
     Indication: PRODUCT USED FOR UNKNOWN INDICATION
     Route: 065

REACTIONS (2)
  - Hyponatraemia [Recovered/Resolved]
  - Pathological fracture [Unknown]
